FAERS Safety Report 6367775-6 (Version None)
Quarter: 2009Q3

REPORT INFORMATION
  Report Type: 
  Country: None (occurrence: None)
  Receive Date: 20090921
  Receipt Date: 20090911
  Transmission Date: 20100115
  Serious: Yes (Other)
  Sender: FDA-Public Use
  Company Number: US-GILEAD-2009-0023795

PATIENT
  Sex: Female

DRUGS (4)
  1. ATRIPLA [Suspect]
     Indication: HIV INFECTION
     Route: 048
     Dates: start: 20080501
  2. COMBIVIR [Concomitant]
     Indication: HIV INFECTION
     Dates: start: 19990901
  3. VIRACEPT [Concomitant]
     Indication: HIV INFECTION
     Dates: start: 19990901
  4. ISENTRESS [Concomitant]
     Indication: HIV INFECTION
     Dates: start: 20080901

REACTIONS (1)
  - NEUTROPENIA [None]
